FAERS Safety Report 21335989 (Version 1)
Quarter: 2022Q3

REPORT INFORMATION
  Report Type: Spontaneous
  Country: CN (occurrence: CN)
  Receive Date: 20220915
  Receipt Date: 20220915
  Transmission Date: 20221026
  Serious: Yes (Other)
  Sender: FDA-Public Use
  Company Number: None

PATIENT
  Age: 46 Year
  Sex: Female
  Weight: 75 kg

DRUGS (4)
  1. CYCLOPHOSPHAMIDE [Suspect]
     Active Substance: CYCLOPHOSPHAMIDE
     Indication: Breast cancer female
     Dosage: 1G, QD (DILUTED WITH SODIUM CHLORIDE 200 ML)
     Route: 041
     Dates: start: 20220830, end: 20220830
  2. SODIUM CHLORIDE [Suspect]
     Active Substance: SODIUM CHLORIDE
     Indication: Medication dilution
     Dosage: 200 ML, QD (DILUTED WITH CYCLOPHOSPHAMIDE FOR INJECTION 1 G)
     Route: 041
     Dates: start: 20220830, end: 20220830
  3. SODIUM CHLORIDE [Suspect]
     Active Substance: SODIUM CHLORIDE
     Dosage: 250 ML (DILUTED WITH DOCETAXEL INJECTION 130 MG)
     Route: 041
     Dates: start: 20220830, end: 20220830
  4. DOCETAXEL [Suspect]
     Active Substance: DOCETAXEL
     Indication: Breast cancer female
     Dosage: 130 MG (DILUTED WITH SODIUM CHLORIDE INJECTION 250 ML)
     Route: 041
     Dates: start: 20220830, end: 20220830

REACTIONS (1)
  - White blood cell count decreased [Recovering/Resolving]

NARRATIVE: CASE EVENT DATE: 20220905
